FAERS Safety Report 19825398 (Version 2)
Quarter: 2021Q4

REPORT INFORMATION
  Report Type: Spontaneous
  Country: US (occurrence: US)
  Receive Date: 20210914
  Receipt Date: 20211023
  Transmission Date: 20220303
  Serious: Yes (Other)
  Sender: FDA-Public Use
  Company Number: US-JNJFOC-20210914343

PATIENT
  Age: 63 Year
  Sex: Female
  Weight: 80.7 kg

DRUGS (32)
  1. FENTANYL [Suspect]
     Active Substance: FENTANYL
     Indication: Pain
     Route: 062
  2. NURTEC ODT [Suspect]
     Active Substance: RIMEGEPANT SULFATE
     Indication: Migraine
     Route: 048
     Dates: start: 2021
  3. BOTOX [Concomitant]
     Active Substance: ONABOTULINUMTOXINA
     Indication: Migraine
     Dosage: EVERY 10 WEEKS
  4. SPRIX [Concomitant]
     Active Substance: KETOROLAC TROMETHAMINE
     Indication: Migraine
  5. SYMBICORT [Concomitant]
     Active Substance: BUDESONIDE\FORMOTEROL FUMARATE DIHYDRATE
  6. VENTOLIN [Concomitant]
     Active Substance: ALBUTEROL SULFATE
  7. TORSEMIDE [Concomitant]
     Active Substance: TORSEMIDE
  8. SPIRONOLACTONE [Concomitant]
     Active Substance: SPIRONOLACTONE
  9. CARTIA XT [Concomitant]
     Active Substance: DILTIAZEM HYDROCHLORIDE
  10. BYSTOLIC [Concomitant]
     Active Substance: NEBIVOLOL HYDROCHLORIDE
  11. JARDIANCE [Concomitant]
     Active Substance: EMPAGLIFLOZIN
  12. DIAZEPAM [Concomitant]
     Active Substance: DIAZEPAM
  13. MYRBETRIQ [Concomitant]
     Active Substance: MIRABEGRON
  14. ZETIA [Concomitant]
     Active Substance: EZETIMIBE
  15. ASPIRIN [Concomitant]
     Active Substance: ASPIRIN
  16. FOLIC ACID [Concomitant]
     Active Substance: FOLIC ACID
  17. MONTELUKAST [Concomitant]
     Active Substance: MONTELUKAST SODIUM
  18. LEVOTHYROXINE [Concomitant]
     Active Substance: LEVOTHYROXINE
  19. TIZANIDINE [Concomitant]
     Active Substance: TIZANIDINE
  20. PANTOPRAZOLE [Concomitant]
     Active Substance: PANTOPRAZOLE
  21. SERTRALINE [Concomitant]
     Active Substance: SERTRALINE HYDROCHLORIDE
  22. OXYCODONE [Concomitant]
     Active Substance: OXYCODONE
  23. CLONIDINE [Concomitant]
     Active Substance: CLONIDINE
  24. PROCHLORPERAZINE [Concomitant]
     Active Substance: PROCHLORPERAZINE
  25. LACTULOSE [Concomitant]
     Active Substance: LACTULOSE
  26. FLECTOR TISSUGEL EP [Concomitant]
     Route: 062
  27. LIDOCAINE [Concomitant]
     Active Substance: LIDOCAINE
  28. EMGALITY [Concomitant]
     Active Substance: GALCANEZUMAB-GNLM
  29. PRIMROSE [Concomitant]
  30. VITAMIN D3 [Concomitant]
     Active Substance: CHOLECALCIFEROL
  31. FISH OIL [Concomitant]
     Active Substance: FISH OIL
  32. QUININE [Concomitant]
     Active Substance: QUININE

REACTIONS (6)
  - Kidney infection [Not Recovered/Not Resolved]
  - Nephrolithiasis [Not Recovered/Not Resolved]
  - Migraine [Not Recovered/Not Resolved]
  - Nephritis [Not Recovered/Not Resolved]
  - Cerebrovascular accident [Unknown]
  - Drug withdrawal syndrome [Recovered/Resolved]

NARRATIVE: CASE EVENT DATE: 20210101
